FAERS Safety Report 10565503 (Version 1)
Quarter: 2014Q4

REPORT INFORMATION
  Report Type: Spontaneous
  Country: US (occurrence: US)
  Receive Date: 20141105
  Receipt Date: 20141105
  Transmission Date: 20150529
  Serious: No
  Sender: FDA-Public Use
  Company Number: US-PFIZER INC-2014301702

PATIENT
  Age: 5 Year
  Sex: Female
  Weight: 24 kg

DRUGS (10)
  1. GENOTROPIN [Suspect]
     Active Substance: SOMATROPIN
     Indication: BLOOD CHOLESTEROL ABNORMAL
  2. GENOTROPIN [Suspect]
     Active Substance: SOMATROPIN
     Indication: FAILURE TO THRIVE
     Dosage: AT 13.3 UNKNOWN UNITS DAILY BEFORE BEDTIME
     Dates: start: 20141028
  3. TOPAMAX [Concomitant]
     Active Substance: TOPIRAMATE
     Dosage: 25 MG, 2X/DAY (ONE IN MORNING AND ONE IN AFTERNOON)
  4. DDAVP [Concomitant]
     Active Substance: DESMOPRESSIN ACETATE
     Indication: BLOOD SODIUM ABNORMAL
     Dosage: 0.1 MG ONE TABLET IN THE MORNING AND HALF A TABLET IN EVENING
  5. SYNTHROID [Concomitant]
     Active Substance: LEVOTHYROXINE SODIUM
     Dosage: 1 DF, DAILY
  6. CEPHALEXIN. [Suspect]
     Active Substance: CEPHALEXIN
     Indication: EAR INFECTION
     Dosage: 5 ML, 3X/DAY
     Dates: start: 20141024
  7. CEPHALEXIN. [Suspect]
     Active Substance: CEPHALEXIN
     Indication: URINARY TRACT INFECTION
  8. PREVACID [Concomitant]
     Active Substance: LANSOPRAZOLE
     Dosage: 35 MG, 1X/DAY
  9. CORTEF [Concomitant]
     Active Substance: HYDROCORTISONE
     Dosage: HALF A TABLET IN MORNING AND HALF A TABLET IN EVENING, 2X/DAY
  10. ALBUTEROL. [Concomitant]
     Active Substance: ALBUTEROL
     Dosage: UNK, AS NEEDED

REACTIONS (5)
  - Pyrexia [Recovering/Resolving]
  - Screaming [Unknown]
  - Urticaria [Not Recovered/Not Resolved]
  - Rash [Unknown]
  - Off label use [Unknown]

NARRATIVE: CASE EVENT DATE: 201410
